FAERS Safety Report 13781216 (Version 1)
Quarter: 2017Q3

REPORT INFORMATION
  Report Type: Spontaneous
  Country: US (occurrence: US)
  Receive Date: 20170724
  Receipt Date: 20170724
  Transmission Date: 20171127
  Serious: Yes (Other)
  Sender: FDA-Public Use
  Company Number: US-STRIDES ARCOLAB LIMITED-2017SP005383

PATIENT

DRUGS (4)
  1. PREDNISONE. [Concomitant]
     Active Substance: PREDNISONE
     Indication: GLOMERULONEPHRITIS MINIMAL LESION
     Dosage: 20 MG, QD
     Route: 065
  2. PREDNISONE. [Concomitant]
     Active Substance: PREDNISONE
     Dosage: {10 MG, QD
     Route: 065
  3. MYCOPHENOLATE MOFETIL. [Suspect]
     Active Substance: MYCOPHENOLATE MOFETIL
     Indication: GLOMERULONEPHRITIS MINIMAL LESION
     Dosage: 0.75 G, BID
     Route: 065
  4. SODIUM [Concomitant]
     Active Substance: SODIUM
     Indication: MEDICAL DIET
     Dosage: 2 G PER DAY
     Route: 065

REACTIONS (2)
  - Hodgkin^s disease [Recovered/Resolved]
  - Off label use [Unknown]
